FAERS Safety Report 5853933-3 (Version None)
Quarter: 2008Q3

REPORT INFORMATION
  Report Type: 
  Country: None (occurrence: None)
  Receive Date: 20080822
  Receipt Date: 20080815
  Transmission Date: 20090109
  Serious: Yes (Other)
  Sender: FDA-Public Use
  Company Number: B0413914A

PATIENT
  Age: 47 Year
  Sex: Female

DRUGS (11)
  1. SEROXAT [Suspect]
     Route: 065
     Dates: start: 19970717
  2. SEROXAT [Suspect]
     Route: 048
  3. ZISPIN [Concomitant]
     Dates: start: 20040305
  4. PROPRANOLOL [Concomitant]
     Dates: start: 19970701
  5. CHLORPROMAZINE [Concomitant]
  6. DIAZEPAM [Concomitant]
     Dates: start: 19970724
  7. KEMADRIN [Concomitant]
     Dates: start: 19970724
  8. ZIMOVANE [Concomitant]
     Dates: start: 19970807
  9. DYDROGESTERONE TAB [Concomitant]
     Dates: start: 19981001
  10. OXAZEPAM [Concomitant]
     Dates: start: 19990301, end: 19990301
  11. NORETHINDRONE ACETATE [Concomitant]
     Dates: start: 20000501

REACTIONS (14)
  - ABNORMAL DREAMS [None]
  - ADVERSE EVENT [None]
  - AGGRESSION [None]
  - BALANCE DISORDER [None]
  - BLOOD ALKALINE PHOSPHATASE INCREASED [None]
  - DEPRESSED MOOD [None]
  - DRUG WITHDRAWAL SYNDROME [None]
  - HYPERVENTILATION [None]
  - HYPOAESTHESIA [None]
  - MALAISE [None]
  - MUSCULAR WEAKNESS [None]
  - PANIC REACTION [None]
  - PERSONALITY CHANGE [None]
  - WEIGHT INCREASED [None]
